FAERS Safety Report 7936096-X (Version None)
Quarter: 2011Q4

REPORT INFORMATION
  Report Type: 
  Country: None (occurrence: None)
  Receive Date: 20111121
  Receipt Date: 20111111
  Transmission Date: 20120403
  Serious: Yes (Other)
  Sender: FDA-Public Use
  Company Number: GR-ACCORD-011174

PATIENT
  Age: 64 Year
  Sex: Male

DRUGS (3)
  1. PACLITAXEL [Suspect]
     Indication: NON-SMALL CELL LUNG CANCER METASTATIC
     Dosage: 175.00-MG/M2-3.0 WEEKS /INTRAVENOUS (NOT OTHERWISE SPECIFIED)
     Route: 042
  2. CARBOPLATIN [Concomitant]
  3. BEVACIZUMAB(BEVACIZUMAB) [Concomitant]

REACTIONS (2)
  - CYSTOID MACULAR OEDEMA [None]
  - CATARACT NUCLEAR [None]
